FAERS Safety Report 9027521 (Version 1)
Quarter: 2013Q1

REPORT INFORMATION
  Report Type: Spontaneous
  Country: US (occurrence: US)
  Receive Date: 20130124
  Receipt Date: 20130124
  Transmission Date: 20140127
  Serious: No
  Sender: FDA-Public Use
  Company Number: US-BIOGENIDEC-2013BI004618

PATIENT
  Sex: Female

DRUGS (4)
  1. TYSABRI [Suspect]
     Indication: MULTIPLE SCLEROSIS
     Route: 042
     Dates: start: 20090316
  2. AVONEX [Concomitant]
     Indication: MULTIPLE SCLEROSIS
     Route: 030
     Dates: start: 20000830
  3. HYDROCORTISONE [Concomitant]
     Indication: PREMEDICATION
  4. BACLOFEN [Concomitant]
     Indication: PREMEDICATION

REACTIONS (7)
  - General physical health deterioration [Not Recovered/Not Resolved]
  - Road traffic accident [Recovered/Resolved]
  - Neuropathy peripheral [Unknown]
  - Feeling of body temperature change [Recovered/Resolved]
  - Emphysema [Not Recovered/Not Resolved]
  - Cough [Recovered/Resolved]
  - Fatigue [Recovered/Resolved]
